FAERS Safety Report 11678274 (Version 1)
Quarter: 2015Q4

REPORT INFORMATION
  Report Type: Spontaneous
  Country: US (occurrence: US)
  Receive Date: 20151027
  Receipt Date: 20151027
  Transmission Date: 20160304
  Serious: No
  Sender: FDA-Public Use
  Company Number: US-ELI_LILLY_AND_COMPANY-US201010001748

PATIENT
  Age: 69 Year
  Sex: Female

DRUGS (2)
  1. FORTEO [Suspect]
     Active Substance: TERIPARATIDE
     Indication: OSTEOPOROSIS
     Dosage: 20 UG, DAILY (1/D)
     Route: 065
     Dates: start: 20100929
  2. FORTEO [Suspect]
     Active Substance: TERIPARATIDE
     Dosage: 20 UG, DAILY (1/D)

REACTIONS (6)
  - Wrong technique in product usage process [Unknown]
  - Incorrect dose administered [Unknown]
  - Injury associated with device [Unknown]
  - Haemorrhage [Recovered/Resolved]
  - Injection site reaction [Unknown]
  - Tremor [Unknown]

NARRATIVE: CASE EVENT DATE: 20101103
